FAERS Safety Report 6884115-4 (Version None)
Quarter: 2010Q3

REPORT INFORMATION
  Report Type: 
  Country: None (occurrence: None)
  Receive Date: 20100729
  Receipt Date: 20100721
  Transmission Date: 20110219
  Serious: Yes (Life-Threatening, Hospitalization, Other)
  Sender: FDA-Public Use
  Company Number: US-ROXANE LABORATORIES, INC.-2010-RO-00889RO

PATIENT
  Age: 46 Year
  Sex: Male

DRUGS (10)
  1. METHADONE HCL [Suspect]
     Indication: DRUG WITHDRAWAL MAINTENANCE THERAPY
     Dosage: 20 MG
  2. DIAZEPAM [Suspect]
  3. LORAZEPAM [Suspect]
     Indication: DRUG WITHDRAWAL MAINTENANCE THERAPY
     Dosage: 2 MG
  4. LORAZEPAM [Suspect]
  5. OXYCODONE [Suspect]
     Indication: BACK PAIN
     Dosage: 350 MG
     Route: 048
  6. OXYCONTIN [Suspect]
     Indication: BACK PAIN
     Dosage: 400 MG
     Route: 048
  7. CARISOPRODOL [Suspect]
     Dosage: 1050 MG
     Route: 048
  8. NALOXONE [Suspect]
  9. NALOXONE [Suspect]
  10. PROPOFOL [Suspect]

REACTIONS (6)
  - ENCEPHALITIS [None]
  - GRAND MAL CONVULSION [None]
  - HYDROCEPHALUS [None]
  - LEUKOENCEPHALOPATHY [None]
  - NARCOTIC INTOXICATION [None]
  - RESPIRATORY DEPRESSION [None]
